FAERS Safety Report 9312618 (Version 1)
Quarter: 2013Q2

REPORT INFORMATION
  Report Type: Spontaneous
  Country: LB (occurrence: LB)
  Receive Date: 20130528
  Receipt Date: 20130528
  Transmission Date: 20140414
  Serious: Yes (Other)
  Sender: FDA-Public Use
  Company Number: LB-GLAXOSMITHKLINE-B0894022A

PATIENT
  Age: 6 Month
  Sex: Male

DRUGS (1)
  1. BACTROBAN [Suspect]
     Indication: CIRCUMCISION
     Route: 065
     Dates: start: 20130504, end: 20130504

REACTIONS (1)
  - Haemorrhage [Recovered/Resolved]
